FAERS Safety Report 6391061-1 (Version None)
Quarter: 2009Q4

REPORT INFORMATION
  Report Type: 
  Country: None (occurrence: None)
  Receive Date: 20091006
  Receipt Date: 20091006
  Transmission Date: 20100525
  Serious: Yes (Other)
  Sender: FDA-Public Use
  Company Number: None

PATIENT
  Sex: Male
  Weight: 92.0802 kg

DRUGS (3)
  1. ZICAM [Suspect]
     Indication: VIRAL UPPER RESPIRATORY TRACT INFECTION
     Dosage: 6 OR 8 USES
     Dates: start: 20050801, end: 20080731
  2. GLUCOSAMINE/CHONDROITIN [Concomitant]
  3. IBUPROFEN [Concomitant]

REACTIONS (1)
  - ANOSMIA [None]
